FAERS Safety Report 24228248 (Version 1)
Quarter: 2024Q3

REPORT INFORMATION
  Report Type: Spontaneous
  Country: US (occurrence: US)
  Receive Date: 20240820
  Receipt Date: 20240820
  Transmission Date: 20241016
  Serious: No
  Sender: MYLAN
  Company Number: US-MYLANLABS-2024M1075950

PATIENT
  Sex: Female
  Weight: 65.77 kg

DRUGS (1)
  1. ESTRADIOL TRANSDERMAL SYSTEM [Suspect]
     Active Substance: ESTRADIOL
     Indication: Product used for unknown indication
     Dosage: 0.025 MILLIGRAM, QD (PER DAY)
     Route: 062

REACTIONS (2)
  - Product storage error [Unknown]
  - Product adhesion issue [Unknown]
